FAERS Safety Report 8604363 (Version 2)
Quarter: 2012Q4

REPORT INFORMATION
  Report Type: 
  Country: DE (occurrence: DE)
  Receive Date: 20120608
  Receipt Date: 20121107
  Transmission Date: 20130627
  Serious: Yes (Other)
  Sender: FDA-Public Use
  Company Number: DE-JNJFOC-20120600015

PATIENT

DRUGS (1)
  1. METHYLPHENIDATE HYDROCHLORIDE [Suspect]
     Indication: CENTRAL NERVOUS SYSTEM STIMULATION
     Route: 048

REACTIONS (3)
  - Drug diversion [Unknown]
  - Drug abuse [Unknown]
  - Off label use [Unknown]
